FAERS Safety Report 10413387 (Version 4)
Quarter: 2015Q1

REPORT INFORMATION
  Report Type: Report from Study
  Country: DE (occurrence: US)
  Receive Date: 20140827
  Receipt Date: 20150108
  Transmission Date: 20150720
  Serious: Yes (Hospitalization)
  Sender: FDA-Public Use
  Company Number: DE-OTSUKA-US-2014-12223

PATIENT

DRUGS (3)
  1. OPC-41061 [Suspect]
     Active Substance: TOLVAPTAN
     Indication: CONGENITAL CYSTIC KIDNEY DISEASE
     Dosage: 45/15 MG MILLIGRAM(S), DAILY DOSE
     Route: 048
     Dates: start: 20111015, end: 20140417
  2. RAMIPRIL. [Concomitant]
     Active Substance: RAMIPRIL
     Indication: HYPERTENSION
     Dosage: 2.5 MG MILLIGRAM(S), UNK
     Route: 048
     Dates: start: 200809
  3. OMEPRAZOL                          /00661201/ [Concomitant]
     Active Substance: OMEPRAZOLE
     Indication: GASTRITIS
     Dosage: 20 MG MILLIGRAM(S), UNK
     Route: 048
     Dates: start: 201009

REACTIONS (3)
  - Pleural effusion [None]
  - Cyst rupture [Recovered/Resolved]
  - Fall [None]

NARRATIVE: CASE EVENT DATE: 20140821
